FAERS Safety Report 9502486 (Version 1)
Quarter: 2013Q3

REPORT INFORMATION
  Report Type: Spontaneous
  Country: US (occurrence: None)
  Receive Date: 20130905
  Receipt Date: 20130905
  Transmission Date: 20140515
  Serious: Yes (Hospitalization, Other)
  Sender: FDA-Public Use
  Company Number: ADR-2013-01540

PATIENT
  Sex: Female

DRUGS (1)
  1. LIORESAL INTRATHECAL [Suspect]
     Indication: MUSCLE SPASTICITY

REACTIONS (2)
  - Delayed recovery from anaesthesia [None]
  - Device battery issue [None]
